FAERS Safety Report 10168960 (Version 1)
Quarter: 2014Q2

REPORT INFORMATION
  Report Type: Spontaneous
  Country: CA (occurrence: None)
  Receive Date: 20140509
  Receipt Date: 20140509
  Transmission Date: 20141212
  Serious: Yes (Other)
  Sender: FDA-Public Use
  Company Number: 2014AP002883

PATIENT
  Age: 75 Year
  Sex: Female
  Weight: 59.9 kg

DRUGS (5)
  1. ATORVASTATIN [Suspect]
     Indication: DYSLIPIDAEMIA
     Dates: start: 20110908, end: 20110911
  2. PARIET (RABEPRAZOLE SODIUM) [Concomitant]
  3. ATACAND (CANDESARTAN CILEXETIL) [Concomitant]
  4. CITALOPRAM (CITALOPRAM) [Concomitant]
  5. ACTONEL (RISEDRONATE SODIUM) [Concomitant]

REACTIONS (3)
  - Blood cholesterol increased [None]
  - Drug ineffective [None]
  - Product substitution issue [None]
